FAERS Safety Report 8283150-1 (Version None)
Quarter: 2012Q2

REPORT INFORMATION
  Report Type: 
  Country: None (occurrence: None)
  Receive Date: 20120413
  Receipt Date: 20120402
  Transmission Date: 20120825
  Serious: Yes (Other)
  Sender: FDA-Public Use
  Company Number: FR-VIIV HEALTHCARE LIMITED-B0792590A

PATIENT
  Sex: Male

DRUGS (15)
  1. PRAVASTATIN [Concomitant]
     Dosage: 20MG PER DAY
     Route: 065
     Dates: start: 20111001
  2. COMBIVIR [Suspect]
     Indication: HIV INFECTION
     Route: 048
     Dates: start: 20060620, end: 20071001
  3. ATRIPLA [Suspect]
     Indication: HIV INFECTION
     Dosage: 1UNIT PER DAY
     Route: 048
     Dates: start: 20110708
  4. ALENDRONATE SODIUM [Concomitant]
     Route: 065
     Dates: start: 20110601
  5. CALCIUM CARBONATE [Concomitant]
     Route: 065
     Dates: start: 20111225
  6. KALETRA [Concomitant]
     Route: 065
     Dates: start: 20060620, end: 20110708
  7. CLONAZEPAM [Concomitant]
     Route: 065
  8. NEXIUM [Concomitant]
     Route: 065
  9. SPASMAG [Concomitant]
     Route: 065
  10. TRUVADA [Concomitant]
     Route: 065
     Dates: start: 20071001, end: 20110701
  11. MORPHINE SULFATE [Concomitant]
     Route: 065
  12. TRAMADOL HCL [Concomitant]
     Route: 065
  13. SULFARLEM [Concomitant]
     Route: 065
  14. CREON [Concomitant]
     Route: 065
     Dates: start: 20090901
  15. OXAZEPAM [Concomitant]
     Route: 065
     Dates: start: 20111001

REACTIONS (4)
  - HEPATITIS ACUTE [None]
  - FATTY LIVER ALCOHOLIC [None]
  - HEPATOMEGALY [None]
  - HEPATIC CIRRHOSIS [None]
